FAERS Safety Report 7437899-0 (Version None)
Quarter: 2011Q2

REPORT INFORMATION
  Report Type: 
  Country: None (occurrence: None)
  Receive Date: 20110426
  Receipt Date: 20110411
  Transmission Date: 20111010
  Serious: Yes (Other)
  Sender: FDA-Public Use
  Company Number: B0712652A

PATIENT
  Sex: Male
  Weight: 105 kg

DRUGS (4)
  1. AVANDAMET [Suspect]
     Indication: DIABETES MELLITUS
     Route: 048
     Dates: start: 20031101, end: 20080101
  2. METFORMIN [Concomitant]
  3. AMARYL [Concomitant]
  4. AVANDIA [Suspect]
     Dosage: 8MG PER DAY
     Route: 048
     Dates: start: 20000101, end: 20060101

REACTIONS (4)
  - RENAL FAILURE CHRONIC [None]
  - HYPERTENSION [None]
  - NEPHROPATHY [None]
  - HYPERLIPIDAEMIA [None]
